FAERS Safety Report 25873234 (Version 1)
Quarter: 2025Q4

REPORT INFORMATION
  Report Type: Spontaneous
  Country: CN (occurrence: CN)
  Receive Date: 20251002
  Receipt Date: 20251002
  Transmission Date: 20260117
  Serious: Yes (Other)
  Sender: ROCHE
  Company Number: CN-ROCHE-10000397848

PATIENT
  Age: 38 Year
  Sex: Female

DRUGS (5)
  1. AVASTIN [Suspect]
     Active Substance: BEVACIZUMAB
     Indication: Colon cancer
     Route: 050
     Dates: start: 20250922, end: 20250922
  2. IRINOTECAN HYDROCHLORIDE [Suspect]
     Active Substance: IRINOTECAN HYDROCHLORIDE
     Indication: Colon cancer
     Route: 042
     Dates: start: 20250922, end: 20250922
  3. FLUOROURACIL [Suspect]
     Active Substance: FLUOROURACIL
     Indication: Colon cancer
     Route: 050
     Dates: start: 20250922, end: 20250922
  4. FLUOROURACIL [Suspect]
     Active Substance: FLUOROURACIL
     Route: 042
     Dates: start: 20250922, end: 20250924
  5. PEGYLATED GRANULOCYTE COLONY-STIMULATING FACTOR [Concomitant]
     Active Substance: PEGYLATED GRANULOCYTE COLONY-STIMULATING FACTOR
     Indication: White blood cell count increased
     Route: 058

REACTIONS (1)
  - Myelosuppression [Unknown]

NARRATIVE: CASE EVENT DATE: 20250924
